FAERS Safety Report 10502752 (Version 1)
Quarter: 2014Q4

REPORT INFORMATION
  Report Type: Spontaneous
  Country: CN (occurrence: CN)
  Receive Date: 20141007
  Receipt Date: 20141007
  Transmission Date: 20150528
  Serious: Yes (Other)
  Sender: FDA-Public Use
  Company Number: CN-BAYER-2014-148206

PATIENT

DRUGS (2)
  1. BAYASPIRIN [Suspect]
     Active Substance: ASPIRIN
     Indication: CEREBRAL INFARCTION
  2. BAYASPIRIN [Suspect]
     Active Substance: ASPIRIN
     Indication: HYPERTENSION
     Route: 048

REACTIONS (2)
  - Activated partial thromboplastin time prolonged [None]
  - Thyroid neoplasm [None]
